FAERS Safety Report 8484008-5 (Version None)
Quarter: 2012Q2

REPORT INFORMATION
  Report Type: 
  Country: None (occurrence: None)
  Receive Date: 20120627
  Receipt Date: 20120627
  Transmission Date: 20120825
  Serious: Yes (Disabling, Other)
  Sender: FDA-Public Use
  Company Number: None

PATIENT
  Sex: Male

DRUGS (1)
  1. CIPROFLOXACIN [Suspect]
     Indication: BRONCHITIS
     Dosage: 500MG ONCE PO ONCE
     Route: 048

REACTIONS (5)
  - PAIN IN EXTREMITY [None]
  - NEURALGIA [None]
  - NEUROPATHY PERIPHERAL [None]
  - MUSCULOSKELETAL STIFFNESS [None]
  - BURNING SENSATION [None]
